FAERS Safety Report 4346136-5 (Version None)
Quarter: 2004Q2

REPORT INFORMATION
  Report Type: 
  Country: None (occurrence: None)
  Receive Date: 20040421
  Receipt Date: 20040316
  Transmission Date: 20050107
  Serious: Yes (Other)
  Sender: FDA-Public Use
  Company Number: 161251

PATIENT
  Age: 40 Year
  Sex: Female
  Weight: 47.6277 kg

DRUGS (6)
  1. AVONEX [Suspect]
     Indication: MULTIPLE SCLEROSIS
     Dosage: 30 MCG QW IM
     Route: 030
     Dates: start: 20000501, end: 20040101
  2. AVONEX [Suspect]
     Indication: MULTIPLE SCLEROSIS
     Dosage: 30 MCG QW IM
     Route: 030
     Dates: start: 20040101
  3. ZOLOFT [Concomitant]
  4. OXYFAST [Concomitant]
  5. IBUPROFEN [Concomitant]
  6. IMITREX [Concomitant]

REACTIONS (11)
  - ANAEMIA [None]
  - BONE DISORDER [None]
  - FIBROMYALGIA [None]
  - HYPOTHYROIDISM [None]
  - INFLUENZA LIKE ILLNESS [None]
  - INJECTION SITE PAIN [None]
  - LYMPHADENOPATHY [None]
  - NEUROPATHY [None]
  - OSTEOARTHRITIS [None]
  - ROCKY MOUNTAIN SPOTTED FEVER [None]
  - THYMUS HYPERTROPHY [None]
